FAERS Safety Report 14123636 (Version 5)
Quarter: 2018Q2

REPORT INFORMATION
  Report Type: Report from Study
  Country: None (occurrence: US)
  Receive Date: 20171025
  Receipt Date: 20180614
  Transmission Date: 20180711
  Serious: Yes (Other)
  Sender: FDA-Public Use
  Company Number: US-ABBVIE-17K-163-2078230-00

PATIENT
  Sex: Female

DRUGS (2)
  1. HUMIRA [Suspect]
     Active Substance: ADALIMUMAB
     Indication: PSORIASIS
     Route: 058
     Dates: start: 201611
  2. HUMIRA [Suspect]
     Active Substance: ADALIMUMAB
     Indication: PSORIATIC ARTHROPATHY
     Route: 058
     Dates: start: 201409, end: 201507

REACTIONS (4)
  - Pain in extremity [Recovering/Resolving]
  - Psoriasis [Not Recovered/Not Resolved]
  - Sensitivity to weather change [Unknown]
  - Procedural pain [Unknown]

NARRATIVE: CASE EVENT DATE: 2017
